FAERS Safety Report 7128815-X (Version None)
Quarter: 2010Q4

REPORT INFORMATION
  Report Type: 
  Country: None (occurrence: None)
  Receive Date: 20101130
  Receipt Date: 20101117
  Transmission Date: 20110411
  Serious: Yes (Hospitalization)
  Sender: FDA-Public Use
  Company Number: US-ELI_LILLY_AND_COMPANY-US201011005287

PATIENT
  Sex: Female

DRUGS (2)
  1. HUMULIN N [Suspect]
     Indication: TYPE 2 DIABETES MELLITUS
     Dosage: 42 U, EACH MORNING
     Route: 065
     Dates: start: 20080101
  2. HUMULIN N [Suspect]
     Dosage: 32 U, EACH EVENING
     Dates: start: 20080101

REACTIONS (13)
  - ABDOMINAL PAIN LOWER [None]
  - BACK PAIN [None]
  - BLADDER DISORDER [None]
  - CHRONIC OBSTRUCTIVE PULMONARY DISEASE [None]
  - DYSPNOEA [None]
  - HYPOAESTHESIA [None]
  - INTERVERTEBRAL DISC PROTRUSION [None]
  - MEMORY IMPAIRMENT [None]
  - MOBILITY DECREASED [None]
  - SPINAL COLUMN STENOSIS [None]
  - STRESS [None]
  - URINARY TRACT INFECTION [None]
  - VULVOVAGINAL PAIN [None]
